FAERS Safety Report 11024422 (Version 5)
Quarter: 2015Q2

REPORT INFORMATION
  Report Type: Spontaneous
  Country: JP (occurrence: JP)
  Receive Date: 20150414
  Receipt Date: 20150429
  Transmission Date: 20150821
  Serious: Yes (Life-Threatening, Other)
  Sender: FDA-Public Use
  Company Number: JP-009507513-1504JPN009054

PATIENT
  Age: 41 Year
  Sex: Female
  Weight: 56 kg

DRUGS (2)
  1. MARVELON [Suspect]
     Active Substance: DESOGESTREL\ETHINYL ESTRADIOL
     Dosage: UNK, DAILY DOSAGE UNKNOWN
     Route: 048
     Dates: start: 20150319, end: 201504
  2. LUNABELL [Concomitant]
     Active Substance: ETHINYL ESTRADIOL\NORETHINDRONE
     Dosage: DAILY DOSE UNKNOWN
     Route: 048
     Dates: end: 201503

REACTIONS (6)
  - Feeling abnormal [Unknown]
  - Drug dose omission [Unknown]
  - Prothrombin time shortened [Unknown]
  - Abdominal discomfort [Recovered/Resolved]
  - Seizure [Recovered/Resolved]
  - Oedema [Unknown]

NARRATIVE: CASE EVENT DATE: 2015
